FAERS Safety Report 5512770-X (Version None)
Quarter: 2007Q4

REPORT INFORMATION
  Report Type: 
  Country: None (occurrence: None)
  Receive Date: 20071112
  Receipt Date: 20071029
  Transmission Date: 20080405
  Serious: Yes (Other)
  Sender: FDA-Public Use
  Company Number: IL-AMGEN-US176339

PATIENT
  Age: 18 Year
  Sex: Male

DRUGS (2)
  1. ENBREL [Suspect]
     Indication: SPONDYLOARTHROPATHY
     Dosage: UNKNOWN
     Route: 058
  2. METHOTREXATE [Concomitant]
     Indication: UVEITIS
     Dosage: LOW DOSE
     Route: 048

REACTIONS (3)
  - CONDITION AGGRAVATED [None]
  - OPTIC NEURITIS [None]
  - UVEITIS [None]
